FAERS Safety Report 8512589-1 (Version None)
Quarter: 2012Q3

REPORT INFORMATION
  Report Type: 
  Country: None (occurrence: None)
  Receive Date: 20120716
  Receipt Date: 20120705
  Transmission Date: 20120928
  Serious: Yes (Death, Hospitalization)
  Sender: FDA-Public Use
  Company Number: US-BRISTOL-MYERS SQUIBB COMPANY-16722696

PATIENT
  Age: 78 Year
  Sex: Female
  Weight: 40 kg

DRUGS (25)
  1. ALBUTEROL [Concomitant]
     Route: 055
  2. HUMULIN R [Concomitant]
     Dosage: INJECATBLE
  3. SODIUM CHLORIDE [Concomitant]
     Dosage: QHS,Q2HPMP
     Route: 042
  4. DASATINIB [Suspect]
     Indication: NON-SMALL CELL LUNG CANCER
     Dosage: DASATINIB 50 MG;1H55827, 20 MG;1L62806.
     Route: 048
     Dates: start: 20120504, end: 20120625
  5. ZOFRAN [Concomitant]
     Indication: VOMITING
     Dosage: TAB
     Route: 048
  6. LEVOTHYROXINE SODIUM [Concomitant]
     Indication: THYROID HORMONE REPLACEMENT THERAPY
     Dosage: TAB
     Route: 048
  7. ZOFRAN [Concomitant]
     Indication: NAUSEA
     Dosage: TAB
     Route: 048
  8. LEVALBUTEROL TARTRATE [Concomitant]
     Route: 055
  9. ONDANSETRON [Concomitant]
     Dosage: EVERY 8TH HOUR ROUTE: MOUTHCHEEKS
  10. HALOPERIDOL LACTATE [Concomitant]
     Dosage: SHORT INF BY VEIN 2MG QHS ALSO TKN
  11. XOPENEX [Concomitant]
     Dosage: 1DF=1PUFF
     Route: 055
  12. TARCEVA [Suspect]
     Indication: NON-SMALL CELL LUNG CANCER
     Route: 048
     Dates: start: 20120504, end: 20120625
  13. SPIRIVA [Concomitant]
     Dosage: CAPSULE
     Route: 055
  14. ATORVASTATIN CALCIUM [Concomitant]
     Indication: BLOOD CHOLESTEROL
     Route: 048
  15. CIPROFLOXACIN [Concomitant]
     Dosage: CIPROFLOXACIN IN DSW
     Route: 042
  16. ATROVENT [Concomitant]
     Dosage: 1DF=1PUFF
     Route: 055
  17. DIPHENOXYLATE HCL + ATROPINE SULFATE [Concomitant]
     Dosage: 1 DF:1 TAB Q4H
     Route: 048
  18. GEMFIBROZIL [Concomitant]
     Indication: DIABETES MELLITUS
     Dosage: TAB
     Route: 048
  19. BENZONATATE [Concomitant]
     Indication: COUGH
     Dosage: PRN
     Route: 048
  20. DEXTROSE [Concomitant]
     Dosage: FREQUENCY: UD
     Route: 042
  21. LOSARTAN POTASSIUM AND HYDROCHLOROTHIAZIDE [Concomitant]
     Indication: BLOOD PRESSURE
     Dosage: TAB 12.5MG/50MG
     Route: 048
  22. IRON [Concomitant]
     Route: 048
  23. METFORMIN HCL [Concomitant]
     Indication: DIABETES MELLITUS
     Dosage: TAB
     Route: 048
  24. MORPHINE [Concomitant]
     Dosage: Q2HPM
     Route: 042
  25. PANTOPRAZOLE SODIUM [Concomitant]
     Route: 042

REACTIONS (5)
  - MULTI-ORGAN FAILURE [None]
  - HYPONATRAEMIA [None]
  - MENTAL STATUS CHANGES [None]
  - ENTEROCOLITIS [None]
  - ESCHERICHIA URINARY TRACT INFECTION [None]
